FAERS Safety Report 7363549-8 (Version None)
Quarter: 2011Q1

REPORT INFORMATION
  Report Type: 
  Country: None (occurrence: None)
  Receive Date: 20110321
  Receipt Date: 20110316
  Transmission Date: 20110831
  Serious: Yes (Death)
  Sender: FDA-Public Use
  Company Number: DE-JNJFOC-20110305938

PATIENT
  Age: 81 Year
  Sex: Male

DRUGS (5)
  1. SEROQUEL [Interacting]
     Route: 065
  2. HALDOL [Suspect]
     Indication: PRODUCT USED FOR UNKNOWN INDICATION
     Dosage: 1.30 AM
     Route: 042
  3. TAVOR [Interacting]
     Indication: PRODUCT USED FOR UNKNOWN INDICATION
     Route: 065
  4. SEROQUEL [Interacting]
     Indication: PRODUCT USED FOR UNKNOWN INDICATION
     Route: 065
  5. HALDOL [Suspect]
     Dosage: 6.30 PM
     Route: 042

REACTIONS (3)
  - DEATH [None]
  - DRUG INTERACTION [None]
  - INCORRECT ROUTE OF DRUG ADMINISTRATION [None]
